FAERS Safety Report 4677240-X (Version None)
Quarter: 2005Q2

REPORT INFORMATION
  Report Type: 
  Country: None (occurrence: None)
  Receive Date: 20050526
  Receipt Date: 20050526
  Transmission Date: 20051028
  Serious: Yes (Other)
  Sender: FDA-Public Use
  Company Number: None

PATIENT
  Sex: Male

DRUGS (3)
  1. PAXIL (GENERIC) [Suspect]
     Indication: ANXIETY
     Dosage: 2 C  4X A WEEK
  2. PAXIL (GENERIC) [Suspect]
     Indication: DEPRESSION
     Dosage: 2 C  4X A WEEK
  3. PAXIL (GENERIC) [Suspect]
     Indication: PANIC DISORDER
     Dosage: 2 C  4X A WEEK

REACTIONS (1)
  - THERAPEUTIC PRODUCT INEFFECTIVE [None]
